FAERS Safety Report 8096958-2 (Version None)
Quarter: 2012Q1

REPORT INFORMATION
  Report Type: 
  Country: None (occurrence: None)
  Receive Date: 20120129
  Receipt Date: 20111129
  Transmission Date: 20120608
  Serious: No
  Sender: FDA-Public Use
  Company Number: US-ABBOTT-11P-163-0837116-00

PATIENT
  Sex: Female
  Weight: 67.646 kg

DRUGS (6)
  1. HUMIRA [Suspect]
     Indication: RHEUMATOID ARTHRITIS
     Dates: start: 20110601
  2. HUMIRA [Suspect]
     Indication: RHEUMATOID ARTHRITIS
     Dosage: 40 MG EVERY 2 WEEKS
     Dates: start: 20110401
  3. UNKNOWN MEDICATIONS [Concomitant]
     Indication: ESSENTIAL TREMOR
  4. UNKNOWN MEDICATIONS [Concomitant]
     Indication: OSTEOPOROSIS
  5. UNKNOWN MEDICATIONS [Concomitant]
     Indication: FIBROMYALGIA
  6. UNKNOWN MEDICATIONS [Concomitant]
     Indication: SJOGREN'S SYNDROME

REACTIONS (3)
  - INJECTION SITE ERYTHEMA [None]
  - INJECTION SITE PAIN [None]
  - INJECTION SITE RASH [None]
